FAERS Safety Report 9264952 (Version 1)
Quarter: 2013Q2

REPORT INFORMATION
  Report Type: Spontaneous
  Country: AU (occurrence: AU)
  Receive Date: 20130501
  Receipt Date: 20130501
  Transmission Date: 20140414
  Serious: Yes (Life-Threatening, Hospitalization)
  Sender: FDA-Public Use
  Company Number: AU-ACCORD-017414

PATIENT
  Age: 85 Year
  Sex: Male

DRUGS (7)
  1. SIMVASTATIN [Suspect]
     Indication: PRODUCT USED FOR UNKNOWN INDICATION
  2. ERYTHROMYCIN [Interacting]
     Indication: PNEUMONIA
  3. CLOPIDOGREL [Concomitant]
  4. BUDESONIDE W/FORMOTEROL FUMARATE [Concomitant]
     Dosage: 400/12 MCG
  5. TIOTROPIUM BROMIDE [Concomitant]
  6. LANSOPRAZOLE [Concomitant]
  7. RISEDRONATE SODIUM [Concomitant]

REACTIONS (3)
  - Rhabdomyolysis [Recovered/Resolved]
  - Nephropathy [Recovered/Resolved]
  - Drug interaction [Unknown]
